FAERS Safety Report 5967017-7 (Version None)
Quarter: 2008Q4

REPORT INFORMATION
  Report Type: 
  Country: None (occurrence: None)
  Receive Date: 20081125
  Receipt Date: 20081111
  Transmission Date: 20090506
  Serious: Yes (Other)
  Sender: FDA-Public Use
  Company Number: US-ELI_LILLY_AND_COMPANY-US200811002467

PATIENT
  Sex: Female

DRUGS (5)
  1. FORTEO [Suspect]
     Dates: start: 20080701
  2. SIMVASTATIN [Concomitant]
     Dosage: 20 MG, DAILY (1/D)
  3. ASCORBIC ACID [Concomitant]
  4. ERGOCALCIFEROL [Concomitant]
  5. CALCIUM CARBONATE [Concomitant]

REACTIONS (2)
  - FALL [None]
  - PELVIC FRACTURE [None]
